FAERS Safety Report 9518589 (Version 1)
Quarter: 2013Q3

REPORT INFORMATION
  Report Type: Spontaneous
  Country: US (occurrence: US)
  Receive Date: 20130912
  Receipt Date: 20130912
  Transmission Date: 20140515
  Serious: Yes (Hospitalization)
  Sender: FDA-Public Use
  Company Number: PHEH2013US018941

PATIENT
  Sex: Female

DRUGS (3)
  1. DIOVAN HCT [Suspect]
     Dosage: 1 DF, (160MG VALS, UKN HCTZ), UNK
     Dates: start: 20020910
  2. TOPROL [Concomitant]
     Dosage: 25 MG, UNK
  3. AMLODIPINE [Concomitant]
     Dosage: 5 MG, UNK

REACTIONS (1)
  - Myocardial infarction [Unknown]
